FAERS Safety Report 23727164 (Version 1)
Quarter: 2024Q2

REPORT INFORMATION
  Report Type: Spontaneous
  Country: US (occurrence: US)
  Receive Date: 20240410
  Receipt Date: 20240410
  Transmission Date: 20240716
  Serious: No
  Sender: FDA-Public Use
  Company Number: US-TEVA-VS-3178648

PATIENT
  Age: 82 Year
  Sex: Female

DRUGS (21)
  1. AUSTEDO [Suspect]
     Active Substance: DEUTETRABENAZINE
     Indication: Tardive dyskinesia
     Route: 065
  2. FLOVENT [Concomitant]
     Active Substance: FLUTICASONE PROPIONATE
     Indication: Product used for unknown indication
     Dosage: EVERY MORNING
     Route: 065
  3. DEXTROAMPHET SACCHARAT, AMPHET ASPARTATE, DEXTROAMPHET SULFATE AND AMP [Concomitant]
     Active Substance: AMPHETAMINE ASPARTATE\AMPHETAMINE ASPARTATE MONOHYDRATE\AMPHETAMINE SULFATE\DEXTROAMPHETAMINE SACCHA
     Indication: Product used for unknown indication
     Dosage: 15 MG TWICE A DAY
     Route: 065
  4. PRIMIDONE [Concomitant]
     Active Substance: PRIMIDONE
     Indication: Product used for unknown indication
     Dosage: PRIMIDONE^100 IN MORNING
     Route: 065
  5. PRIMIDONE [Concomitant]
     Active Substance: PRIMIDONE
     Indication: Product used for unknown indication
     Route: 065
  6. diltiazem ER 120 mg [Concomitant]
     Indication: Product used for unknown indication
     Dosage: I TAKE TWO SO 240 IN MORNING AND240 AT NIGHT
     Route: 065
  7. EidonLions Mane [Concomitant]
  8. PANTOPRAZOLE [Concomitant]
     Active Substance: PANTOPRAZOLE
     Indication: Product used for unknown indication
     Dosage: PANTOPRAZOLE 40 MG TWICE A DAY49
     Route: 065
  9. CARBAMAZEPINE [Concomitant]
     Active Substance: CARBAMAZEPINE
     Indication: Product used for unknown indication
     Route: 065
  10. MAGNESIUM OXIDE [Concomitant]
     Active Substance: MAGNESIUM OXIDE
     Indication: Product used for unknown indication
     Dosage: TIME INTERVAL: 0.33333333 DAYS
     Route: 065
  11. NIACINAMIDE [Concomitant]
     Active Substance: NIACINAMIDE
     Dosage: TIME INTERVAL: 0.33333333 DAYS
     Route: 065
  12. lithium carbonate, [Concomitant]
     Indication: Product used for unknown indication
     Route: 065
  13. pravastatin 80 mg at nigh [Concomitant]
     Indication: Product used for unknown indication
     Dosage: PRAVASTATIN 80 MG AT NIGHT
     Route: 065
  14. EXEMESTANE [Concomitant]
     Active Substance: EXEMESTANE
     Indication: Product used for unknown indication
     Dosage: EXEMESTANE 25 MG TWO?AT NIGH
     Route: 065
  15. VALACYCLOVIR [Concomitant]
     Active Substance: VALACYCLOVIR HYDROCHLORIDE
     Indication: Product used for unknown indication
     Dosage: VALACYCLOVIR 500 MG AT NIGH
     Route: 065
  16. ProVision AREDS 2 [Concomitant]
     Indication: Product used for unknown indication
     Dosage: PROVISION AREDS 2 ONE TWICE A DAY
     Route: 065
  17. CYANOCOBALAMIN\DEXPANTHENOL\NIACINAMIDE\PYRIDOXINE HYDROCHLORIDE\RIBOF [Concomitant]
     Active Substance: CYANOCOBALAMIN\DEXPANTHENOL\NIACINAMIDE\PYRIDOXINE HYDROCHLORIDE\RIBOFLAVIN 5^-PHOSPHATE SODIUM\THIA
     Indication: Product used for unknown indication
     Dosage: AT NIGHT
     Route: 065
  18. L-carnitine 2000 [Concomitant]
     Indication: Product used for unknown indication
     Dosage: THREE TIMES A DAY,
     Route: 065
  19. Co-Q 10 400 mg [Concomitant]
     Indication: Product used for unknown indication
     Route: 065
  20. loratadine tablets , [Concomitant]
     Indication: Product used for unknown indication
     Route: 065
  21. LEVOTHYROXINE [Concomitant]
     Active Substance: LEVOTHYROXINE\LEVOTHYROXINE SODIUM

REACTIONS (4)
  - Nausea [Not Recovered/Not Resolved]
  - Off label use [Not Recovered/Not Resolved]
  - Hypersensitivity [Not Recovered/Not Resolved]
  - Vomiting [Not Recovered/Not Resolved]

NARRATIVE: CASE EVENT DATE: 20230101
